FAERS Safety Report 10012864 (Version 1)
Quarter: 2014Q1

REPORT INFORMATION
  Report Type: Spontaneous
  Country: DK (occurrence: DK)
  Receive Date: 20140314
  Receipt Date: 20140314
  Transmission Date: 20141002
  Serious: Yes (Other)
  Sender: FDA-Public Use
  Company Number: DK-WATSON-2014-04427

PATIENT
  Age: 26 Year
  Sex: Male
  Weight: 67 kg

DRUGS (1)
  1. METRONIDAZOL ACTAVIS [Suspect]
     Indication: PHARYNGITIS
     Dosage: 1000 MG, DAILY
     Route: 048
     Dates: start: 20140111, end: 20140116

REACTIONS (3)
  - Mental impairment [Not Recovered/Not Resolved]
  - Sleep disorder [Not Recovered/Not Resolved]
  - Headache [Recovered/Resolved]
